FAERS Safety Report 7208108-2 (Version None)
Quarter: 2010Q4

REPORT INFORMATION
  Report Type: 
  Country: None (occurrence: None)
  Receive Date: 20101222
  Receipt Date: 20101206
  Transmission Date: 20110411
  Serious: Yes (Death, Hospitalization)
  Sender: FDA-Public Use
  Company Number: UTC-003037

PATIENT
  Age: 81 Year
  Sex: Female

DRUGS (1)
  1. REMODULIN [Suspect]
     Indication: PULMONARY ARTERIAL HYPERTENSION
     Dosage: 2044.8 UG/KG (1.42 UG/KG,1 IN 1 MIN), INTRAVENOUS
     Route: 042
     Dates: start: 20090211

REACTIONS (1)
  - PNEUMONIA [None]
